FAERS Safety Report 25837472 (Version 1)
Quarter: 2025Q3

REPORT INFORMATION
  Report Type: Spontaneous
  Country: US (occurrence: US)
  Receive Date: 20250923
  Receipt Date: 20250923
  Transmission Date: 20251020
  Serious: No
  Sender: BAYER HEALTHCARE PHARMACEUTICALS INC.
  Company Number: US-BAYER-2025A124672

PATIENT
  Age: 37 Year
  Sex: Male

DRUGS (2)
  1. ACARBOSE [Suspect]
     Active Substance: ACARBOSE
     Indication: Postprandial hypoglycaemia
  2. DIAZOXIDE [Concomitant]
     Active Substance: DIAZOXIDE

REACTIONS (3)
  - Product use in unapproved indication [None]
  - Product prescribing issue [None]
  - Drug intolerance [None]
